FAERS Safety Report 9652480 (Version 11)
Quarter: 2014Q2

REPORT INFORMATION
  Report Type: Spontaneous
  Country: IT (occurrence: IT)
  Receive Date: 20131029
  Receipt Date: 20140612
  Transmission Date: 20141212
  Serious: Yes (Life-Threatening, Hospitalization)
  Sender: FDA-Public Use
  Company Number: IT-ROCHE-1295667

PATIENT
  Age: 83 Year
  Sex: Male
  Weight: 71 kg

DRUGS (5)
  1. MIRCERA [Suspect]
     Indication: NEPHROGENIC ANAEMIA
     Route: 058
     Dates: start: 20110201, end: 20120701
  2. ARANESP [Suspect]
     Indication: NEPHROGENIC ANAEMIA
     Route: 058
     Dates: start: 20120701, end: 20130501
  3. ARANESP [Suspect]
     Route: 058
     Dates: start: 20130501, end: 20131001
  4. TELMISARTAN [Concomitant]
     Indication: HYPERTENSION
     Route: 048
  5. ACETYLSALICYLIC ACID [Concomitant]
     Route: 048

REACTIONS (7)
  - Anaemia [Recovered/Resolved with Sequelae]
  - Drug ineffective [Unknown]
  - Aplasia pure red cell [Recovered/Resolved with Sequelae]
  - Anti-erythropoietin antibody positive [Recovered/Resolved with Sequelae]
  - Neutralising antibodies positive [Recovered/Resolved with Sequelae]
  - Asthenia [Recovered/Resolved with Sequelae]
  - Fatigue [Recovered/Resolved with Sequelae]
